FAERS Safety Report 25529696 (Version 1)
Quarter: 2025Q3

REPORT INFORMATION
  Report Type: Spontaneous
  Country: EU (occurrence: EU)
  Receive Date: 20250708
  Receipt Date: 20250708
  Transmission Date: 20251021
  Serious: Yes (Hospitalization, Other)
  Sender: BRISTOL-MYERS SQUIBB COMPANY
  Company Number: EU-BRISTOL-MYERS SQUIBB COMPANY-2025-094639

PATIENT
  Age: 87 Year
  Sex: Female

DRUGS (2)
  1. ELIQUIS [Suspect]
     Active Substance: APIXABAN
     Indication: Atrial fibrillation
     Dates: start: 202401
  2. ELIQUIS [Suspect]
     Active Substance: APIXABAN
     Dates: end: 202506

REACTIONS (3)
  - Wound haemorrhage [Recovered/Resolved]
  - Muscle haemorrhage [Recovered/Resolved]
  - Muscle rupture [Recovered/Resolved]

NARRATIVE: CASE EVENT DATE: 20240701
